FAERS Safety Report 15982892 (Version 1)
Quarter: 2019Q1

REPORT INFORMATION
  Report Type: Spontaneous
  Country: IT (occurrence: IT)
  Receive Date: 20190219
  Receipt Date: 20190219
  Transmission Date: 20190418
  Serious: Yes (Hospitalization)
  Sender: FDA-Public Use
  Company Number: PHHY2019IT034613

PATIENT
  Age: 53 Year
  Sex: Male

DRUGS (9)
  1. MORPHINE [Suspect]
     Active Substance: MORPHINE
     Indication: PRODUCT USED FOR UNKNOWN INDICATION
     Dosage: 40 MG, TOTAL
     Route: 065
     Dates: start: 20180317, end: 20180317
  2. ABSTRAL [Suspect]
     Active Substance: FENTANYL CITRATE
     Indication: HEADACHE
     Dosage: 800 UG, TOTAL
     Route: 060
     Dates: start: 20180317, end: 20180317
  3. PROZAC [Concomitant]
     Active Substance: FLUOXETINE HYDROCHLORIDE
     Indication: PRODUCT USED FOR UNKNOWN INDICATION
     Dosage: 40 MG, QD
     Route: 048
  4. RIVOTRIL [Suspect]
     Active Substance: CLONAZEPAM
     Indication: PRODUCT USED FOR UNKNOWN INDICATION
     Dosage: 10 ML, TOTAL
     Route: 048
     Dates: start: 20180317, end: 20180317
  5. SUBUTEX [Suspect]
     Active Substance: BUPRENORPHINE HYDROCHLORIDE
     Indication: PAIN
     Dosage: 16 MG, TOTAL
     Route: 060
     Dates: start: 20180317, end: 20180317
  6. OPTALIDON [CAFFEINE\ERGOTAMINE] [Suspect]
     Active Substance: CAFFEINE\ERGOTAMINE
     Indication: HEADACHE
     Dosage: 100 MG, TOTAL
     Route: 048
     Dates: start: 20180317, end: 20180317
  7. ATENOLOL. [Concomitant]
     Active Substance: ATENOLOL
     Indication: HEADACHE
     Dosage: 50 MG, QD
     Route: 048
  8. ATENOLOL. [Concomitant]
     Active Substance: ATENOLOL
     Dosage: 50 MG, QD
     Route: 048
     Dates: start: 20170101
  9. PROZAC [Concomitant]
     Active Substance: FLUOXETINE HYDROCHLORIDE
     Dosage: 40 MG, QD
     Route: 048
     Dates: start: 20170101

REACTIONS (3)
  - Overdose [Recovered/Resolved]
  - Miosis [Recovered/Resolved]
  - Sopor [Recovered/Resolved]

NARRATIVE: CASE EVENT DATE: 20180317
